FAERS Safety Report 13774940 (Version 1)
Quarter: 2017Q3

REPORT INFORMATION
  Report Type: Spontaneous
  Country: US (occurrence: US)
  Receive Date: 20170721
  Receipt Date: 20170721
  Transmission Date: 20171127
  Serious: Yes (Other)
  Sender: FDA-Public Use
  Company Number: US-JNJFOC-20170708200

PATIENT
  Age: 43 Year
  Sex: Female

DRUGS (2)
  1. EVICEL [Suspect]
     Active Substance: FIBRINOGEN HUMAN\THROMBIN HUMAN
     Indication: MENINGOCELE REPAIR
     Route: 061
  2. EVICEL [Suspect]
     Active Substance: FIBRINOGEN HUMAN\THROMBIN HUMAN
     Indication: MENINGOCELE REPAIR
     Route: 061

REACTIONS (4)
  - Product use in unapproved indication [Recovered/Resolved]
  - Off label use [Unknown]
  - Cerebrospinal fluid leakage [Recovered/Resolved]
  - Drug ineffective for unapproved indication [Recovered/Resolved]
